FAERS Safety Report 5613597-0 (Version None)
Quarter: 2008Q1

REPORT INFORMATION
  Report Type: 
  Country: None (occurrence: None)
  Receive Date: 20080205
  Receipt Date: 20080130
  Transmission Date: 20080703
  Serious: Yes (Life-Threatening, Hospitalization)
  Sender: FDA-Public Use
  Company Number: PHBS2008DE01599

PATIENT
  Age: 77 Year
  Sex: Male

DRUGS (27)
  1. NEBILET [Suspect]
     Dates: start: 20040714, end: 20070814
  2. NORVASC [Suspect]
     Dosage: 5 MG, QD
     Dates: start: 20040717, end: 20040809
  3. PARACODIN BITARTRATE TAB [Suspect]
     Dosage: UNK, QD
     Dates: start: 20040729, end: 20040807
  4. URBASON [Suspect]
     Dates: start: 20040708, end: 20040805
  5. BERODUAL [Concomitant]
     Dates: end: 20040725
  6. TRAMADOL HCL [Concomitant]
     Dates: start: 20040728, end: 20040728
  7. POTASSIUM CHLORIDE [Concomitant]
     Dates: start: 20040804, end: 20040809
  8. ALDACTONE [Concomitant]
     Dates: start: 20040806, end: 20040809
  9. CEPHORAL [Suspect]
     Dosage: 400 MG/D
     Dates: start: 20040803, end: 20040814
  10. ACETYLCYSTEINE [Suspect]
     Dates: start: 20040728, end: 20040814
  11. LISINOPRIL AND HYDROCHLOROTHIAZIDE [Suspect]
     Dosage: 1 DF/D
     Dates: start: 20040717, end: 20040809
  12. ASPIRIN [Suspect]
     Dosage: 100 MG, QD
     Dates: start: 20040717, end: 20040804
  13. CLEXANE [Suspect]
     Route: 058
     Dates: start: 20040728, end: 20040806
  14. DICODID [Suspect]
     Dosage: 0.5 DF, QD
     Route: 058
     Dates: start: 20040803, end: 20040803
  15. PANTOZOL [Suspect]
     Indication: PROPHYLAXIS AGAINST GASTROINTESTINAL ULCER
     Dates: start: 20040708, end: 20040814
  16. PULMICORT [Suspect]
     Dosage: 1 DF, BID
     Dates: start: 20040717, end: 20040814
  17. TOREM [Suspect]
     Dates: start: 20040730, end: 20040809
  18. AMLODIPINE [Concomitant]
     Dates: start: 20040810, end: 20040814
  19. ATROVENT [Concomitant]
     Dates: start: 20040810, end: 20040814
  20. BRONCHOSPRAY NOVO [Concomitant]
     Dates: start: 20040810, end: 20040814
  21. TORSEMIDE [Concomitant]
     Dates: start: 20040810, end: 20040814
  22. SPIRONOLACTONE [Concomitant]
     Dates: start: 20040810, end: 20040814
  23. LISINOPRIL [Concomitant]
     Dates: start: 20040810, end: 20040814
  24. KALITRANS [Concomitant]
     Dates: start: 20040810
  25. FORADIL [Suspect]
     Indication: CHRONIC OBSTRUCTIVE PULMONARY DISEASE
     Dosage: 1 DF, BID
     Dates: start: 20040726, end: 20040814
  26. LOPIRIN [Suspect]
     Dosage: 25 MG, QD
     Dates: start: 20040101, end: 20040814
  27. LOPIRIN [Suspect]
     Dosage: 25 MG, BID
     Dates: start: 20040814

REACTIONS (6)
  - BLISTER [None]
  - LIP EROSION [None]
  - NIKOLSKY'S SIGN [None]
  - PRURITUS [None]
  - STEVENS-JOHNSON SYNDROME [None]
  - TOXIC EPIDERMAL NECROLYSIS [None]
